FAERS Safety Report 23774533 (Version 1)
Quarter: 2024Q2

REPORT INFORMATION
  Report Type: Spontaneous
  Country: US (occurrence: None)
  Receive Date: 20240423
  Receipt Date: 20240423
  Transmission Date: 20240716
  Serious: Yes (Hospitalization)
  Sender: FDA-Public Use
  Company Number: None

PATIENT
  Age: 74 Year
  Sex: Male
  Weight: 136 kg

DRUGS (1)
  1. APIXABAN [Suspect]
     Active Substance: APIXABAN
     Indication: Pulmonary embolism
     Dosage: FREQUENCY : TWICE A DAY;?
     Dates: start: 20230505, end: 20230531

REACTIONS (3)
  - Haematuria [None]
  - Micturition urgency [None]
  - Atrial fibrillation [None]

NARRATIVE: CASE EVENT DATE: 20230531
